FAERS Safety Report 5883491-9 (Version None)
Quarter: 2008Q3

REPORT INFORMATION
  Report Type: 
  Country: None (occurrence: None)
  Receive Date: 20080912
  Receipt Date: 20080912
  Transmission Date: 20090109
  Serious: Yes (Hospitalization)
  Sender: FDA-Public Use
  Company Number: None

PATIENT
  Sex: Female
  Weight: 61.5 kg

DRUGS (40)
  1. SORAFENIB  600 MG [Suspect]
     Indication: MALIGNANT MELANOMA
     Dosage: 200 MG, PO, Q AM;  400 MG, PO, Q PM
     Route: 048
  2. ASCORBIC ACID [Concomitant]
  3. MULTI-VITAMIN [Concomitant]
  4. CALCIUM D [Concomitant]
  5. GLUCOSAMINE [Concomitant]
  6. VITAMIN E [Concomitant]
  7. COLACE [Concomitant]
  8. EVISTA [Concomitant]
  9. ZYRTEC [Concomitant]
  10. KEFLEX [Concomitant]
  11. SCOPOLAMINE [Concomitant]
  12. D5-LR [Concomitant]
  13. LOVENOX [Concomitant]
  14. CEFAZOLIN [Concomitant]
  15. DEXAMETHASONE [Concomitant]
  16. EPHEDRINE SUL CAP [Concomitant]
  17. FENTANYL [Concomitant]
  18. GLYCOPYRROLATE [Concomitant]
  19. HEPARIN [Concomitant]
  20. LIDOCAINE [Concomitant]
  21. MAZAELOPRAMIDE [Concomitant]
  22. METOPROLOL TARTRATE [Concomitant]
  23. MIDAZOLAM [Concomitant]
  24. NEOSTIGMINE [Concomitant]
  25. ZOFRAN [Concomitant]
  26. PHENYLEPHRINE [Concomitant]
  27. PROPOFOL [Concomitant]
  28. PROTAMINE SULFATE [Concomitant]
  29. RANTIDINE [Concomitant]
  30. FLUORURACIL CREAM [Concomitant]
  31. DUODERM [Concomitant]
  32. CIPRO [Concomitant]
  33. LORA TAB [Concomitant]
  34. LACTATED RINGER'S [Concomitant]
  35. KETOROLAC TROMETHAMINE [Concomitant]
  36. ONDANSETRON [Concomitant]
  37. OXYCODONE HCL [Concomitant]
  38. TYLENOL (CAPLET) [Concomitant]
  39. SONATA [Concomitant]
  40. POTASSIUM CHLORIDE [Concomitant]

REACTIONS (5)
  - CELLULITIS [None]
  - CHILLS [None]
  - NAUSEA [None]
  - PYREXIA [None]
  - SKIN ULCER [None]
